FAERS Safety Report 15269724 (Version 1)
Quarter: 2018Q3

REPORT INFORMATION
  Report Type: Spontaneous
  Country: US (occurrence: US)
  Receive Date: 20180726
  Receipt Date: 20180726
  Transmission Date: 20181010
  Serious: Yes (Death, Life-Threatening, Hospitalization, Congenital Anomaly)
  Sender: FDA-Public Use
  Company Number: None

PATIENT
  Age: 50 Year
  Sex: Female
  Weight: 122 kg

DRUGS (13)
  1. LEVOFLOXACIN. [Concomitant]
     Active Substance: LEVOFLOXACIN
     Dates: start: 20180510, end: 20180519
  2. ROSUVASTATIN. [Concomitant]
     Active Substance: ROSUVASTATIN
     Dates: start: 20180510
  3. METOPROLOL. [Concomitant]
     Active Substance: METOPROLOL
     Dates: start: 20180510
  4. INSULIN LISPRO [Concomitant]
     Active Substance: INSULIN LISPRO
     Dates: start: 20180510
  5. YONDELIS [Suspect]
     Active Substance: TRABECTEDIN
     Indication: SARCOMA UTERUS
     Dosage: ?          OTHER FREQUENCY:ONCE;?
     Route: 042
  6. QUETIAPINE. [Concomitant]
     Active Substance: QUETIAPINE
     Dates: start: 20180510
  7. EPOETIN [Concomitant]
     Active Substance: ERYTHROPOIETIN
     Dates: start: 20180510
  8. MEGESTROL [Concomitant]
     Active Substance: MEGESTROL
     Dates: start: 20180510
  9. PRAMIPREXOLE [Concomitant]
     Active Substance: PRAMIPEXOLE
     Dates: start: 20180510
  10. NEULASTA [Concomitant]
     Active Substance: PEGFILGRASTIM
     Dates: start: 20180509, end: 20180510
  11. PREDNISONE. [Concomitant]
     Active Substance: PREDNISONE
     Dates: start: 20180518
  12. FILGRASTIM [Concomitant]
     Active Substance: FILGRASTIM
     Dates: start: 20180510
  13. INSULIN GLARGINE [Concomitant]
     Active Substance: INSULIN GLARGINE
     Dates: start: 20180510

REACTIONS (2)
  - Acute respiratory failure [None]
  - Acute kidney injury [None]

NARRATIVE: CASE EVENT DATE: 20180508
